FAERS Safety Report 19145367 (Version 1)
Quarter: 2021Q2

REPORT INFORMATION
  Report Type: Spontaneous
  Country: US (occurrence: US)
  Receive Date: 20210416
  Receipt Date: 20210416
  Transmission Date: 20210717
  Serious: Yes (Hospitalization)
  Sender: FDA-Public Use
  Company Number: US-VERTEX PHARMACEUTICALS-2021-004964

PATIENT
  Age: 5 Year
  Sex: Male

DRUGS (1)
  1. TRIKAFTA [Suspect]
     Active Substance: ELEXACAFTOR\IVACAFTOR\TEZACAFTOR
     Indication: CYSTIC FIBROSIS
     Dosage: 1 ORANGE TAB (100 MG ELEXA/ 50 MG TEZA/ 75 MG IVA) AM AND 1/2 BLUE TAB (150MG IVA) PM
     Route: 048
     Dates: start: 20210225

REACTIONS (2)
  - Cystic fibrosis respiratory infection suppression [Unknown]
  - Off label use [Unknown]

NARRATIVE: CASE EVENT DATE: 20210225
